FAERS Safety Report 4667837-5 (Version None)
Quarter: 2005Q2

REPORT INFORMATION
  Report Type: 
  Country: None (occurrence: None)
  Receive Date: 20050519
  Receipt Date: 20050519
  Transmission Date: 20051028
  Serious: Yes (Other)
  Sender: FDA-Public Use
  Company Number: None

PATIENT
  Age: 56 Year
  Sex: Female
  Weight: 61.2356 kg

DRUGS (7)
  1. ALBUTEROL [Suspect]
     Indication: BRONCHITIS
     Dosage: 17G    PRN    RESPIRATOR
     Route: 055
     Dates: start: 20050310, end: 20050318
  2. ALBUTEROL [Suspect]
     Indication: WHEEZING
     Dosage: 17G    PRN    RESPIRATOR
     Route: 055
     Dates: start: 20050310, end: 20050318
  3. ZITHROMYCIN Z-PAC [Concomitant]
  4. DAILY VITAMIN [Concomitant]
  5. CALTRATE [Concomitant]
  6. BLACK COHOSH [Concomitant]
  7. IRON [Concomitant]

REACTIONS (8)
  - BLOOD PRESSURE DECREASED [None]
  - DIZZINESS [None]
  - EUPHORIC MOOD [None]
  - FEELING ABNORMAL [None]
  - HEART RATE INCREASED [None]
  - LOSS OF CONSCIOUSNESS [None]
  - PALPITATIONS [None]
  - VENTRICULAR EXTRASYSTOLES [None]
